FAERS Safety Report 5841520-2 (Version None)
Quarter: 2008Q3

REPORT INFORMATION
  Report Type: 
  Country: None (occurrence: None)
  Receive Date: 20080731
  Receipt Date: 20080618
  Transmission Date: 20090109
  Serious: No
  Sender: FDA-Public Use
  Company Number: US200806004453

PATIENT
  Age: 73 Year
  Sex: Female
  Weight: 73.5 kg

DRUGS (16)
  1. BYETTA [Suspect]
     Indication: TYPE 2 DIABETES MELLITUS
     Dosage: SEE IMAGE
     Route: 058
     Dates: start: 20060101, end: 20060101
  2. BYETTA [Suspect]
     Indication: TYPE 2 DIABETES MELLITUS
     Dosage: SEE IMAGE
     Route: 058
     Dates: start: 20060101, end: 20060101
  3. BYETTA [Suspect]
     Indication: TYPE 2 DIABETES MELLITUS
     Dosage: SEE IMAGE
     Route: 058
     Dates: start: 20060101, end: 20060101
  4. BYETTA [Suspect]
     Indication: TYPE 2 DIABETES MELLITUS
     Dosage: SEE IMAGE
     Route: 058
     Dates: start: 20060101
  5. METFORMIN HCL [Concomitant]
  6. STARLIX [Concomitant]
  7. ARIMIDEX [Concomitant]
  8. VYTORIN [Concomitant]
  9. NIASPAN [Concomitant]
  10. BENICAR [Concomitant]
  11. MOBIC [Concomitant]
  12. TRICOR [Concomitant]
  13. TOPROL-XL [Concomitant]
  14. EFFEXOR XR [Concomitant]
  15. SYNTHROID [Concomitant]
  16. ZELNORM [Concomitant]

REACTIONS (6)
  - BLOOD GLUCOSE DECREASED [None]
  - HEARING IMPAIRED [None]
  - PALLOR [None]
  - TREMOR [None]
  - VOMITING [None]
  - WEIGHT DECREASED [None]
